FAERS Safety Report 11135347 (Version 1)
Quarter: 2015Q2

REPORT INFORMATION
  Report Type: Report from Study
  Country: US (occurrence: US)
  Receive Date: 20150525
  Receipt Date: 20150525
  Transmission Date: 20150821
  Serious: Yes (Death, Other)
  Sender: FDA-Public Use
  Company Number: PHEH2015US009966

PATIENT
  Sex: Male

DRUGS (2)
  1. AFINITOR [Suspect]
     Active Substance: EVEROLIMUS
     Indication: HEAD AND NECK CANCER
     Dosage: 0.5 MG, QD
     Route: 048
     Dates: start: 20150401
  2. AFINITOR [Suspect]
     Active Substance: EVEROLIMUS
     Indication: OEDEMA

REACTIONS (3)
  - Off label use [Unknown]
  - Septic shock [Fatal]
  - Multi-organ failure [Fatal]
